FAERS Safety Report 14825644 (Version 1)
Quarter: 2018Q2

REPORT INFORMATION
  Report Type: Spontaneous
  Country: IT (occurrence: IT)
  Receive Date: 20180430
  Receipt Date: 20180430
  Transmission Date: 20180711
  Serious: Yes (Other)
  Sender: FDA-Public Use
  Company Number: IT-BRISTOL-MYERS SQUIBB COMPANY-BMS-2018-035570

PATIENT
  Sex: Male

DRUGS (2)
  1. DROMOS [Interacting]
     Active Substance: LEVOCARNITINE
     Indication: ARTERIAL DISORDER
     Dosage: UNK
     Route: 065
  2. COUMADIN [Suspect]
     Active Substance: WARFARIN SODIUM
     Indication: CARDIAC FIBRILLATION
     Dosage: 1 DF, UNK
     Route: 065

REACTIONS (2)
  - Drug interaction [Unknown]
  - International normalised ratio fluctuation [Not Recovered/Not Resolved]
